FAERS Safety Report 7363819-3 (Version None)
Quarter: 2011Q1

REPORT INFORMATION
  Report Type: 
  Country: None (occurrence: None)
  Receive Date: 20110321
  Receipt Date: 20110314
  Transmission Date: 20110831
  Serious: Yes (Hospitalization)
  Sender: FDA-Public Use
  Company Number: BR-ROCHE-511627

PATIENT
  Sex: Female
  Weight: 54 kg

DRUGS (7)
  1. ROACUTAN [Suspect]
     Route: 048
     Dates: end: 20070727
  2. ROACUTAN [Suspect]
     Indication: ACNE
     Dosage: STRENGTH REPORTED AS 20 MG
     Route: 048
     Dates: start: 20060101, end: 20060101
  3. ROACUTAN [Suspect]
     Route: 048
  4. ROACUTAN [Suspect]
     Dosage: STRENGTH REPORTED AS 10 MG.
     Route: 048
     Dates: start: 20060101, end: 20060101
  5. DIANE [Concomitant]
     Indication: CONTRACEPTION
     Dosage: DRUG NAME: DIANE 35
     Route: 048
     Dates: end: 20070101
  6. ROACUTAN [Suspect]
     Dosage: STRENGTH REPORTED AS 10 MG, PATIENT MISSED DOSAGE FOR 3 DAYS
     Route: 048
     Dates: start: 20070501, end: 20070719
  7. ROACUTAN [Suspect]
     Route: 048
     Dates: start: 20070901, end: 20071001

REACTIONS (1)
  - ABORTION INDUCED [None]
